FAERS Safety Report 8799204 (Version 1)
Quarter: 2012Q4

REPORT INFORMATION
  Report Type: 
  Country: US (occurrence: US)
  Receive Date: 20120920
  Receipt Date: 20120920
  Transmission Date: 20130627
  Serious: No
  Sender: FDA-Public Use
  Company Number: US-ASTRAZENECA-2012SE24601

PATIENT
  Age: 78 Year
  Sex: Male
  Weight: 93.4 kg

DRUGS (10)
  1. LISINOPRIL [Suspect]
     Indication: HYPERTENSION
     Route: 048
  2. METOPROLOL [Suspect]
     Route: 065
  3. METOPROLOL [Suspect]
     Route: 065
  4. METOPROLOL [Suspect]
     Route: 065
  5. CRESTOR [Suspect]
     Indication: BLOOD CHOLESTEROL ABNORMAL
     Route: 048
  6. BRILINTA [Suspect]
     Indication: ATRIAL FIBRILLATION
     Route: 048
     Dates: start: 201109
  7. COUMADIN [Concomitant]
  8. BABY ASPIRIN [Concomitant]
  9. DIGOXIN [Concomitant]
     Indication: CARDIAC DISORDER
  10. PILL FOR ALLERGY [Concomitant]
     Indication: HYPERSENSITIVITY

REACTIONS (3)
  - Dyspnoea [Unknown]
  - Heart rate increased [Recovered/Resolved]
  - Off label use [Unknown]
